FAERS Safety Report 6312966-3 (Version None)
Quarter: 2009Q3

REPORT INFORMATION
  Report Type: 
  Country: None (occurrence: None)
  Receive Date: 20090818
  Receipt Date: 20090805
  Transmission Date: 20100115
  Serious: Yes (Other)
  Sender: FDA-Public Use
  Company Number: US-ROCHE-649073

PATIENT
  Age: 68 Year
  Sex: Female

DRUGS (8)
  1. CELLCEPT [Suspect]
     Indication: PROPHYLAXIS AGAINST TRANSPLANT REJECTION
     Route: 048
     Dates: start: 20070101, end: 20090201
  2. FOSAMAX [Concomitant]
  3. CALCIUM [Concomitant]
  4. PROGRAF [Concomitant]
  5. ACYCLOVIR [Concomitant]
  6. METOPROLOL TARTRATE [Concomitant]
  7. BUPROPION [Concomitant]
  8. PENICILLIN [Concomitant]

REACTIONS (1)
  - SCLERODERMA [None]
